FAERS Safety Report 4836786-1 (Version None)
Quarter: 2005Q4

REPORT INFORMATION
  Report Type: 
  Country: None (occurrence: None)
  Receive Date: 20051121
  Receipt Date: 20051110
  Transmission Date: 20060501
  Serious: Yes (Hospitalization)
  Sender: FDA-Public Use
  Company Number: S05-CAN-04978-01

PATIENT
  Sex: Female

DRUGS (2)
  1. TIAZAC [Suspect]
     Dosage: 300 MG QD PO
     Route: 048
  2. DILTIAZEM HYDROCHLORIDE [Suspect]

REACTIONS (2)
  - ATRIAL FIBRILLATION [None]
  - BRADYCARDIA [None]
